FAERS Safety Report 21670376 (Version 2)
Quarter: 2022Q4

REPORT INFORMATION
  Report Type: Spontaneous
  Country: FR (occurrence: FR)
  Receive Date: 20221201
  Receipt Date: 20221214
  Transmission Date: 20230112
  Serious: Yes (Other)
  Sender: FDA-Public Use
  Company Number: FR-TEVA-2022-FR-2830814

PATIENT
  Sex: Male

DRUGS (5)
  1. METHOTREXATE [Suspect]
     Active Substance: METHOTREXATE
     Indication: Neurodermatitis
     Dosage: 30 MG/WEEK
     Route: 065
     Dates: start: 201611
  2. METHOTREXATE [Suspect]
     Active Substance: METHOTREXATE
     Dosage: 20 MG/WEEK
     Route: 065
  3. ALITRETINOIN [Suspect]
     Active Substance: ALITRETINOIN
     Indication: Neurodermatitis
     Dosage: 30 MILLIGRAM DAILY;
     Route: 065
     Dates: start: 201712
  4. ALITRETINOIN [Suspect]
     Active Substance: ALITRETINOIN
     Dosage: 10 MILLIGRAM DAILY;
     Route: 065
  5. ALITRETINOIN [Suspect]
     Active Substance: ALITRETINOIN
     Dosage: 20 MILLIGRAM DAILY;
     Route: 065

REACTIONS (2)
  - Hypercholesterolaemia [Unknown]
  - Erysipelas [Unknown]
